FAERS Safety Report 4940804-X (Version None)
Quarter: 2006Q1

REPORT INFORMATION
  Report Type: 
  Country: None (occurrence: None)
  Receive Date: 20060307
  Receipt Date: 20060221
  Transmission Date: 20060701
  Serious: Yes (Hospitalization)
  Sender: FDA-Public Use
  Company Number: US-2005-017787

PATIENT
  Age: 57 Year
  Sex: Male
  Weight: 68 kg

DRUGS (5)
  1. BETASERON [Suspect]
     Indication: SECONDARY PROGRESSIVE MULTIPLE SCLEROSIS
     Dosage: 8 MIU, EVERY 2D, SUBCUTANEOUS
     Route: 058
     Dates: start: 19951201
  2. BACLOFEN [Concomitant]
  3. ZANAFLEX [Concomitant]
  4. CELEXA [Concomitant]
  5. FLOMAX [Concomitant]

REACTIONS (1)
  - INJECTION SITE ABSCESS [None]
